FAERS Safety Report 8555909 (Version 2)
Quarter: 2014Q2

REPORT INFORMATION
  Report Type: Spontaneous
  Country: US (occurrence: US)
  Receive Date: 20120510
  Receipt Date: 20140402
  Transmission Date: 20141212
  Serious: Yes (Other)
  Sender: FDA-Public Use
  Company Number: US-BAYER-2012-044273

PATIENT
  Age: 39 Year
  Sex: Female
  Weight: 70.75 kg

DRUGS (3)
  1. YASMIN [Suspect]
     Indication: CONTRACEPTION
     Dosage: UNK
     Route: 048
     Dates: start: 200312, end: 200701
  2. ARMOUR THYROID [Concomitant]
     Dosage: 120 MG LONG TERM USE
  3. AZITHROMYCIN [Concomitant]
     Dosage: 250 MG, UNK

REACTIONS (4)
  - Deep vein thrombosis [Recovering/Resolving]
  - Injury [Recovering/Resolving]
  - Pain [Recovering/Resolving]
  - Mental disorder [None]
